FAERS Safety Report 24439036 (Version 1)
Quarter: 2024Q4

REPORT INFORMATION
  Report Type: Report from Study
  Country: BR (occurrence: BR)
  Receive Date: 20241015
  Receipt Date: 20241015
  Transmission Date: 20250114
  Serious: Yes (Other)
  Sender: JOHNSON AND JOHNSON
  Company Number: BR-JNJFOC-20241028405

PATIENT
  Age: 17 Year
  Sex: Male
  Weight: 60 kg

DRUGS (2)
  1. INFLIXIMAB [Suspect]
     Active Substance: INFLIXIMAB
     Indication: Crohn^s disease
     Route: 041
     Dates: start: 2020
  2. REMICADE [Suspect]
     Active Substance: INFLIXIMAB
     Indication: Crohn^s disease
     Dosage: 15 DAYS, THEN THE DOCTOR CHANGED IT TO EVERY 1 MONTH AND ENDED UP PERFORMING AN INFUSION EVERY 2 MON
     Route: 041
     Dates: start: 20201210

REACTIONS (7)
  - Crohn^s disease [Unknown]
  - Depression [Unknown]
  - Anal fissure [Unknown]
  - Product residue present [Unknown]
  - Alopecia [Unknown]
  - Sleep disorder [Unknown]
  - Off label use [Unknown]
